FAERS Safety Report 6536934-1 (Version None)
Quarter: 2010Q1

REPORT INFORMATION
  Report Type: 
  Country: None (occurrence: None)
  Receive Date: 20100105
  Receipt Date: 20091222
  Transmission Date: 20100710
  Serious: Yes (Death, Hospitalization, Other)
  Sender: FDA-Public Use
  Company Number: A-JP2008-20101

PATIENT
  Age: 37 Year
  Sex: Male

DRUGS (17)
  1. TRACLEER [Suspect]
     Indication: PULMONARY HYPERTENSION
     Dosage: 62.5 MG, QD, ORAL; 62.5 MG, BID, ORAL; 31.25 MG, BID, ORAL; 15.625 MG, BID, ORAL
     Route: 048
     Dates: start: 20060613, end: 20060619
  2. TRACLEER [Suspect]
     Indication: PULMONARY HYPERTENSION
     Dosage: 62.5 MG, QD, ORAL; 62.5 MG, BID, ORAL; 31.25 MG, BID, ORAL; 15.625 MG, BID, ORAL
     Route: 048
     Dates: start: 20060620, end: 20061124
  3. TRACLEER [Suspect]
     Indication: PULMONARY HYPERTENSION
     Dosage: 62.5 MG, QD, ORAL; 62.5 MG, BID, ORAL; 31.25 MG, BID, ORAL; 15.625 MG, BID, ORAL
     Route: 048
     Dates: start: 20061125, end: 20061208
  4. TRACLEER [Suspect]
     Indication: PULMONARY HYPERTENSION
     Dosage: 62.5 MG, QD, ORAL; 62.5 MG, BID, ORAL; 31.25 MG, BID, ORAL; 15.625 MG, BID, ORAL
     Route: 048
     Dates: start: 20061209, end: 20061218
  5. VORICONAZOLE [Suspect]
     Dosage: 200 MG, BID,
     Dates: start: 20060116, end: 20060921
  6. BERAPROST SODIUM (BERAPROST SODIUM) [Concomitant]
  7. AMBROXOL HYDROCHLORIDE (AMBROXOL HYDROCHLORIDE) [Concomitant]
  8. CARBOSTINE (CARBOCISTEINE) [Concomitant]
  9. TRIMETOPRIM + SULFAMETOXAZOL (TRIMETHOPRIM, SULFAMETHOXAZOLE) [Concomitant]
  10. LANSOPRAZOLE [Concomitant]
  11. TOCOPHERYL NICOTINATE (TOCOPHERYL NICOTINATE) [Concomitant]
  12. REBAMIPIDE (REBAMIPIDE) [Concomitant]
  13. FLUCONAZOLE [Concomitant]
  14. MICAFUNGIN SODIUM (MICAFUNGIN SODIUM) [Concomitant]
  15. ALPROSTADIL [Concomitant]
  16. OXYGEN (OXYGEN) [Concomitant]
  17. MINOCYCLINE HYDROCHLORIDE [Concomitant]

REACTIONS (6)
  - BRONCHOPULMONARY ASPERGILLOSIS [None]
  - CONDITION AGGRAVATED [None]
  - DRUG INTERACTION [None]
  - DRUG LEVEL DECREASED [None]
  - PRODUCTIVE COUGH [None]
  - PYREXIA [None]
